FAERS Safety Report 6479957-3 (Version None)
Quarter: 2009Q4

REPORT INFORMATION
  Report Type: 
  Country: None (occurrence: None)
  Receive Date: 20091208
  Receipt Date: 20091105
  Transmission Date: 20100525
  Serious: Yes (Other)
  Sender: FDA-Public Use
  Company Number: US-SANOFI-AVENTIS-2009SA003583

PATIENT
  Sex: Female
  Weight: 95.45 kg

DRUGS (5)
  1. LANTUS [Suspect]
     Indication: TYPE 1 DIABETES MELLITUS
     Dosage: DOSE:70 UNIT(S)
     Route: 058
  2. LANTUS [Suspect]
     Dosage: DOSE:60 UNIT(S)
     Route: 058
  3. OPTICLICK [Suspect]
  4. SOLOSTAR [Suspect]
     Indication: TYPE 1 DIABETES MELLITUS
  5. HUMALOG [Suspect]
     Indication: TYPE 1 DIABETES MELLITUS
     Route: 065

REACTIONS (6)
  - EYE HAEMORRHAGE [None]
  - INJECTION SITE PAIN [None]
  - INJECTION SITE REACTION [None]
  - INJECTION SITE SWELLING [None]
  - VISUAL ACUITY REDUCED [None]
  - WEIGHT INCREASED [None]
